FAERS Safety Report 6395408-1 (Version None)
Quarter: 2009Q4

REPORT INFORMATION
  Report Type: 
  Country: None (occurrence: None)
  Receive Date: 20091009
  Receipt Date: 20091005
  Transmission Date: 20100525
  Serious: Yes (Other)
  Sender: FDA-Public Use
  Company Number: FR-TEVA-211390ISR

PATIENT
  Age: 86 Year
  Sex: Female

DRUGS (1)
  1. FLUOXETINE [Suspect]

REACTIONS (1)
  - INTERSTITIAL LUNG DISEASE [None]
